FAERS Safety Report 5146218-4 (Version None)
Quarter: 2006Q4

REPORT INFORMATION
  Report Type: 
  Country: None (occurrence: None)
  Receive Date: 20061106
  Receipt Date: 20061106
  Transmission Date: 20070319
  Serious: Yes (Other)
  Sender: FDA-Public Use
  Company Number: None

PATIENT
  Sex: Female
  Weight: 77.1115 kg

DRUGS (1)
  1. RISPERDAL [Suspect]
     Indication: BIPOLAR DISORDER
     Dosage: 2MG AT BEDTIME PO
     Route: 048
     Dates: start: 20031121, end: 20060321

REACTIONS (7)
  - BLOOD CHOLESTEROL INCREASED [None]
  - DRUG INEFFECTIVE [None]
  - FEELING ABNORMAL [None]
  - LOSS OF LIBIDO [None]
  - TARDIVE DYSKINESIA [None]
  - TORTICOLLIS [None]
  - WEIGHT INCREASED [None]
